FAERS Safety Report 20606595 (Version 1)
Quarter: 2022Q1

REPORT INFORMATION
  Report Type: Spontaneous
  Country: CN (occurrence: CN)
  Receive Date: 20220317
  Receipt Date: 20220317
  Transmission Date: 20220423
  Serious: Yes (Hospitalization, Other)
  Sender: FDA-Public Use
  Company Number: CN-SA-SAC20220310002150

PATIENT
  Age: 64 Year
  Sex: Male

DRUGS (1)
  1. CLOPIDOGREL BISULFATE [Suspect]
     Active Substance: CLOPIDOGREL BISULFATE
     Indication: Acute coronary syndrome
     Dosage: 75 MG
     Route: 048
     Dates: start: 20220225, end: 20220228

REACTIONS (2)
  - Thrombosis [Recovering/Resolving]
  - Chest pain [Recovering/Resolving]

NARRATIVE: CASE EVENT DATE: 20220228
